FAERS Safety Report 10435833 (Version 2)
Quarter: 2014Q4

REPORT INFORMATION
  Report Type: Spontaneous
  Country: US (occurrence: None)
  Receive Date: 20140904
  Receipt Date: 20141229
  Transmission Date: 20150528
  Serious: Yes (Death)
  Sender: FDA-Public Use
  Company Number: 2014EXPUS00230

PATIENT
  Sex: Female

DRUGS (3)
  1. BUPIVACAINE HYDROCHLORIDE. [Suspect]
     Active Substance: BUPIVACAINE HYDROCHLORIDE
     Dosage: INJECTED AS A LARGE BOLUS JUST BEFORE THE PROCEDURE
     Dates: start: 2014, end: 2014
  2. BUPIVACAINE HYDROCHLORIDE. [Suspect]
     Active Substance: BUPIVACAINE HYDROCHLORIDE
     Indication: PRODUCT USED FOR UNKNOWN INDICATION
     Dosage: INJECTED AS A LARGE BOLUS JUST BEFORE THE PROCEDURE
     Dates: start: 2014, end: 2014
  3. EXPAREL [Suspect]
     Active Substance: BUPIVACAINE
     Indication: POSTOPERATIVE ANALGESIA
     Dosage: ONE VIAL ADMINISTERED BY INJECTION
     Dates: start: 2014, end: 2014

REACTIONS (3)
  - Toxicity to various agents [None]
  - Anaesthetic complication cardiac [None]
  - Cardiac arrest [None]

NARRATIVE: CASE EVENT DATE: 2014
